FAERS Safety Report 16006158 (Version 1)
Quarter: 2019Q1

REPORT INFORMATION
  Report Type: Spontaneous
  Country: US (occurrence: US)
  Receive Date: 20190226
  Receipt Date: 20190226
  Transmission Date: 20190418
  Serious: Yes (Other)
  Sender: FDA-Public Use
  Company Number: None

PATIENT
  Age: 40 Year
  Sex: Female

DRUGS (3)
  1. OPIUM TINTURE 10MG/ML [Concomitant]
     Dates: start: 20190211, end: 20190226
  2. ISONIAZID 300 MG TABLETS [Concomitant]
     Dates: start: 20190116, end: 20190226
  3. STELARA [Suspect]
     Active Substance: USTEKINUMAB
     Indication: CROHN^S DISEASE
     Dosage: ?          OTHER FREQUENCY:EVERY 8 WEEKS;?
     Route: 058

REACTIONS (2)
  - Ileostomy [None]
  - Large intestinal obstruction [None]

NARRATIVE: CASE EVENT DATE: 20190121
